FAERS Safety Report 16050113 (Version 3)
Quarter: 2022Q1

REPORT INFORMATION
  Report Type: Report from Study
  Country: US (occurrence: US)
  Receive Date: 20190308
  Receipt Date: 20220118
  Transmission Date: 20220423
  Serious: No
  Sender: FDA-Public Use
  Company Number: US-SHIRE-US201907752

PATIENT
  Sex: Male

DRUGS (1)
  1. IDURSULFASE [Suspect]
     Active Substance: IDURSULFASE
     Indication: Product used for unknown indication
     Dosage: UNK, 1/WEEK
     Route: 042
     Dates: start: 20110331

REACTIONS (3)
  - Illness [Recovered/Resolved]
  - Therapy interrupted [Unknown]
  - Product availability issue [Unknown]
